FAERS Safety Report 7754074-0 (Version None)
Quarter: 2011Q3

REPORT INFORMATION
  Report Type: 
  Country: None (occurrence: None)
  Receive Date: 20110915
  Receipt Date: 20110907
  Transmission Date: 20111222
  Serious: Yes (Other)
  Sender: FDA-Public Use
  Company Number: CA-US-EMD SERONO, INC.-7082230

PATIENT
  Sex: Female

DRUGS (2)
  1. SEROPHENE [Suspect]
     Route: 048
     Dates: start: 20110805, end: 20110810
  2. SEROPHENE [Suspect]
     Indication: PRODUCT USED FOR UNKNOWN INDICATION
     Route: 048
     Dates: start: 20110703, end: 20110708

REACTIONS (1)
  - MUSCLE RUPTURE [None]
